FAERS Safety Report 24961750 (Version 1)
Quarter: 2025Q1

REPORT INFORMATION
  Report Type: Spontaneous
  Country: US (occurrence: US)
  Receive Date: 20250212
  Receipt Date: 20250212
  Transmission Date: 20250408
  Serious: Yes (Hospitalization, Other)
  Sender: MYLAN
  Company Number: US-MYLANLABS-2025M1011945

PATIENT
  Age: 37 Year
  Sex: Male

DRUGS (18)
  1. METHADONE [Suspect]
     Active Substance: METHADONE HYDROCHLORIDE
     Indication: Drug use disorder
     Dosage: 70 MILLIGRAM, QD
     Route: 065
  2. METHADONE [Suspect]
     Active Substance: METHADONE HYDROCHLORIDE
     Dosage: 55 MILLIGRAM, QD (ON DAY 1)
     Route: 065
  3. METHADONE [Suspect]
     Active Substance: METHADONE HYDROCHLORIDE
     Dosage: 55 MILLIGRAM, QD (ON DAY 2)
     Route: 065
  4. ALPRAZOLAM [Suspect]
     Active Substance: ALPRAZOLAM
     Indication: Drug use disorder
     Dosage: 2 MILLIGRAM, QD
     Route: 065
  5. BUPRENORPHINE [Suspect]
     Active Substance: BUPRENORPHINE
     Indication: Drug use disorder
     Dosage: 0.15 MILLIGRAM, Q6H (ON DAY 1)
     Route: 042
  6. BUPRENORPHINE [Suspect]
     Active Substance: BUPRENORPHINE
     Dosage: 0.3 MILLIGRAM, Q6H (ON DAY 2)
     Route: 042
  7. BUPRENORPHINE [Suspect]
     Active Substance: BUPRENORPHINE
     Dosage: 0.6 MILLIGRAM, Q6H (ON DAY 2)
     Route: 042
  8. BUPRENORPHINE [Suspect]
     Active Substance: BUPRENORPHINE
     Route: 042
  9. BUPRENORPHINE [Suspect]
     Active Substance: BUPRENORPHINE
     Route: 042
  10. BUPRENORPHINE [Suspect]
     Active Substance: BUPRENORPHINE
     Route: 042
  11. BUPRENORPHINE [Suspect]
     Active Substance: BUPRENORPHINE
     Route: 042
  12. PHENOBARBITAL [Suspect]
     Active Substance: PHENOBARBITAL
     Indication: Drug use disorder
     Route: 065
  13. PHENOBARBITAL [Suspect]
     Active Substance: PHENOBARBITAL
     Dosage: 97.2 MILLIGRAM, Q4H (ON DAY 1)
     Route: 065
  14. PHENOBARBITAL [Suspect]
     Active Substance: PHENOBARBITAL
     Route: 065
  15. PHENOBARBITAL [Suspect]
     Active Substance: PHENOBARBITAL
     Dosage: 64.8 MILLIGRAM, Q8H (ON DAY 2)
     Route: 065
  16. FLUOXETINE [Concomitant]
     Active Substance: FLUOXETINE HYDROCHLORIDE
     Indication: Post-traumatic stress disorder
     Dosage: 20 MILLIGRAM, QD
     Route: 065
  17. MIRTAZAPINE [Concomitant]
     Active Substance: MIRTAZAPINE
     Indication: Insomnia
     Dosage: 15 MILLIGRAM, QD (AT NIGHT)
     Route: 065
  18. GABAPENTIN [Concomitant]
     Active Substance: GABAPENTIN
     Indication: Anxiety
     Dosage: 600 MILLIGRAM, TID
     Route: 065

REACTIONS (10)
  - Withdrawal syndrome [Unknown]
  - Hyperhidrosis [Unknown]
  - Fatigue [Unknown]
  - Restlessness [Unknown]
  - Abdominal pain upper [Unknown]
  - Anticipatory anxiety [Unknown]
  - Insomnia [Unknown]
  - Nausea [Unknown]
  - Drug dependence [Unknown]
  - Off label use [Unknown]
